FAERS Safety Report 6111824-7 (Version None)
Quarter: 2009Q1

REPORT INFORMATION
  Report Type: 
  Country: None (occurrence: None)
  Receive Date: 20090311
  Receipt Date: 20090227
  Transmission Date: 20090719
  Serious: Yes (Other)
  Sender: FDA-Public Use
  Company Number: JP-PFIZER INC-2008151631

PATIENT

DRUGS (7)
  1. MYCOBUTIN [Suspect]
     Indication: MYCOBACTERIAL INFECTION
     Dosage: 150 MG, 2X/DAY
     Route: 048
     Dates: start: 20081026, end: 20081122
  2. MYCOBUTIN [Suspect]
     Dosage: UNK
     Route: 048
     Dates: start: 20081120, end: 20080101
  3. CLARITH [Concomitant]
     Dosage: UNK
     Route: 048
     Dates: start: 20060918
  4. ETHAMBUTOL HCL [Concomitant]
     Dosage: UNK
     Route: 048
     Dates: start: 20060918
  5. MUCOSOLVAN [Concomitant]
     Dosage: UNK
     Route: 048
     Dates: start: 20020813
  6. MUCODYNE [Concomitant]
     Dosage: UNK
     Route: 048
     Dates: start: 20070927
  7. FERROMIA [Concomitant]
     Dosage: UNK
     Route: 048
     Dates: start: 20020910

REACTIONS (7)
  - ANOREXIA [None]
  - CHILLS [None]
  - DIARRHOEA [None]
  - HYPERHIDROSIS [None]
  - HYPOAESTHESIA [None]
  - LOSS OF CONSCIOUSNESS [None]
  - TREMOR [None]
